FAERS Safety Report 24770926 (Version 1)
Quarter: 2024Q4

REPORT INFORMATION
  Report Type: Spontaneous
  Country: US (occurrence: None)
  Receive Date: 20241223
  Receipt Date: 20241223
  Transmission Date: 20250114
  Serious: No
  Sender: Public
  Company Number: None

PATIENT
  Age: 58 Year
  Sex: Female

DRUGS (2)
  1. TREMFYA [Suspect]
     Active Substance: GUSELKUMAB
     Indication: Psoriatic arthropathy
     Dates: start: 20220410, end: 20241020
  2. TREMFYA [Concomitant]
     Active Substance: GUSELKUMAB
     Dates: start: 20220410, end: 20241020

REACTIONS (2)
  - Weight increased [None]
  - Therapy cessation [None]

NARRATIVE: CASE EVENT DATE: 20241020
